FAERS Safety Report 8461758-8 (Version None)
Quarter: 2012Q2

REPORT INFORMATION
  Report Type: 
  Country: None (occurrence: None)
  Receive Date: 20120619
  Receipt Date: 20120619
  Transmission Date: 20120825
  Serious: No
  Sender: FDA-Public Use
  Company Number: None

PATIENT
  Age: 81 Year
  Sex: Female

DRUGS (1)
  1. DIGOXIN [Suspect]
     Indication: CARDIAC FAILURE CONGESTIVE
     Dosage: 0.25 MG EVERY 8 HOURS PO
     Route: 048
     Dates: start: 20120229, end: 20120301

REACTIONS (4)
  - TOXICITY TO VARIOUS AGENTS [None]
  - RENAL FAILURE [None]
  - HYPOVOLAEMIC SHOCK [None]
  - SEPSIS [None]
